FAERS Safety Report 20753501 (Version 2)
Quarter: 2023Q2

REPORT INFORMATION
  Report Type: Spontaneous
  Country: US (occurrence: None)
  Receive Date: 20220426
  Receipt Date: 20230420
  Transmission Date: 20230721
  Serious: No
  Sender: FDA-Public Use
  Company Number: US-ROCHE-3006951

PATIENT
  Sex: Female

DRUGS (1)
  1. ESBRIET [Suspect]
     Active Substance: PIRFENIDONE
     Indication: Idiopathic pulmonary fibrosis
     Dosage: 2 CAPSULES BY MOUTH THREE TIMES A DAY WITH MEALS (PROTECT FROM SUNBURN)
     Route: 048
     Dates: start: 20220110

REACTIONS (2)
  - Product dose omission in error [Unknown]
  - No adverse event [Unknown]
